APPROVED DRUG PRODUCT: PERPHENAZINE AND AMITRIPTYLINE HYDROCHLORIDE
Active Ingredient: AMITRIPTYLINE HYDROCHLORIDE; PERPHENAZINE
Strength: 10MG;4MG
Dosage Form/Route: TABLET;ORAL
Application: A070620 | Product #001
Applicant: PAR PHARMACEUTICAL INC
Approved: Sep 11, 1986 | RLD: No | RS: No | Type: DISCN